FAERS Safety Report 25314688 (Version 1)
Quarter: 2025Q2

REPORT INFORMATION
  Report Type: Spontaneous
  Country: FR (occurrence: FR)
  Receive Date: 20250514
  Receipt Date: 20250514
  Transmission Date: 20250716
  Serious: Yes (Hospitalization)
  Sender: NOVO NORDISK
  Company Number: None

PATIENT
  Age: 82 Year
  Sex: Female
  Weight: 95 kg

DRUGS (9)
  1. OZEMPIC [Suspect]
     Active Substance: SEMAGLUTIDE
     Indication: Type 2 diabetes mellitus
     Dosage: 0.5 MG PAR SEMAINE
     Route: 058
     Dates: start: 202412, end: 20250324
  2. ASPIRIN [Concomitant]
     Active Substance: ASPIRIN
  3. INSULIN ASPART [Concomitant]
     Active Substance: INSULIN ASPART
  4. BISOPROLOL [Concomitant]
     Active Substance: BISOPROLOL
  5. AMIODARONE [Concomitant]
     Active Substance: AMIODARONE
  6. LIPTRUZET [Concomitant]
     Active Substance: ATORVASTATIN CALCIUM\EZETIMIBE
  7. PERINDOPRIL [Concomitant]
     Active Substance: PERINDOPRIL
  8. REPAGLINIDE [Concomitant]
     Active Substance: REPAGLINIDE
  9. JARDIANCE [Concomitant]
     Active Substance: EMPAGLIFLOZIN

REACTIONS (1)
  - Pemphigoid [Recovering/Resolving]

NARRATIVE: CASE EVENT DATE: 20250324
